FAERS Safety Report 5765509-7 (Version None)
Quarter: 2008Q2

REPORT INFORMATION
  Report Type: 
  Country: None (occurrence: None)
  Receive Date: 20080611
  Receipt Date: 20080605
  Transmission Date: 20081010
  Serious: Yes (Other)
  Sender: FDA-Public Use
  Company Number: JP-ASTRAZENECA-2008AP04401

PATIENT
  Age: 66 Year
  Sex: Male
  Weight: 48 kg

DRUGS (3)
  1. 1% DIPRIVAN INJECTION [Suspect]
     Indication: MAINTENANCE OF ANAESTHESIA
     Route: 042
  2. MIDAZOLAM HCL [Concomitant]
     Indication: INDUCTION OF ANAESTHESIA
     Dosage: DOSE UNKNOWN
     Route: 065
  3. FENTANYL CITRATE [Concomitant]
     Indication: INDUCTION OF ANAESTHESIA
     Dosage: DOSE UNKNOWN
     Route: 065

REACTIONS (1)
  - DELAYED RECOVERY FROM ANAESTHESIA [None]
